FAERS Safety Report 4305295-0 (Version None)
Quarter: 2004Q1

REPORT INFORMATION
  Report Type: 
  Country: None (occurrence: None)
  Receive Date: 20040226
  Receipt Date: 20030304
  Transmission Date: 20041129
  Serious: No
  Sender: FDA-Public Use
  Company Number: US-BRISTOL-MYERS SQUIBB COMPANY-12202255

PATIENT

DRUGS (1)
  1. TAXOL [Suspect]

REACTIONS (1)
  - RASH [None]
